FAERS Safety Report 12530257 (Version 1)
Quarter: 2016Q3

REPORT INFORMATION
  Report Type: Spontaneous
  Country: US (occurrence: None)
  Receive Date: 20160705
  Receipt Date: 20160705
  Transmission Date: 20161109
  Serious: Yes (Other)
  Sender: FDA-Public Use
  Company Number: None

PATIENT
  Age: 63 Year
  Sex: Female
  Weight: 74.84 kg

DRUGS (6)
  1. PROBIOTIC [Concomitant]
     Active Substance: PROBIOTICS NOS
  2. HARVONI [Suspect]
     Active Substance: LEDIPASVIR\SOFOSBUVIR
     Indication: HEPATITIS C
     Route: 048
     Dates: start: 20141225, end: 20150218
  3. FISH OIL [Concomitant]
     Active Substance: FISH OIL
  4. AMLODIPINE [Concomitant]
     Active Substance: AMLODIPINE BESYLATE
  5. BYSTOLIC [Concomitant]
     Active Substance: NEBIVOLOL HYDROCHLORIDE
  6. VITAMIN/MINERAL SUPPLEMENT [Concomitant]

REACTIONS (2)
  - Exostosis [None]
  - Arthralgia [None]

NARRATIVE: CASE EVENT DATE: 20150615
